FAERS Safety Report 25142321 (Version 1)
Quarter: 2025Q1

REPORT INFORMATION
  Report Type: Report from Study
  Country: DK (occurrence: DK)
  Receive Date: 20250331
  Receipt Date: 20250331
  Transmission Date: 20250408
  Serious: Yes (Other)
  Sender: ABBVIE
  Company Number: DK-ABBVIE-5850253

PATIENT
  Age: 74 Year
  Sex: Male
  Weight: 78.8 kg

DRUGS (3)
  1. ABBV-951 [Suspect]
     Active Substance: FOSCARBIDOPA\FOSLEVODOPA
     Indication: Parkinson^s disease
     Route: 058
     Dates: start: 20240521, end: 20240530
  2. VENLAFAXINE HYDROCHLORIDE [Concomitant]
     Active Substance: VENLAFAXINE HYDROCHLORIDE
     Indication: Anxiety
     Route: 048
     Dates: start: 20240215
  3. LAMOTRIGINE [Concomitant]
     Active Substance: LAMOTRIGINE
     Indication: Anxiety
     Dosage: 100+50 MG
     Route: 050
     Dates: start: 20240718

REACTIONS (1)
  - Prostate cancer [Not Recovered/Not Resolved]
